FAERS Safety Report 13384698 (Version 1)
Quarter: 2017Q1

REPORT INFORMATION
  Report Type: Spontaneous
  Country: US (occurrence: US)
  Receive Date: 20170329
  Receipt Date: 20170329
  Transmission Date: 20170429
  Serious: No
  Sender: FDA-Public Use
  Company Number: None

PATIENT
  Age: 20 Year
  Sex: Female
  Weight: 41.4 kg

DRUGS (1)
  1. XULANE [Suspect]
     Active Substance: ETHINYL ESTRADIOL\NORELGESTROMIN
     Indication: CONTRACEPTION

REACTIONS (4)
  - Haemorrhage [None]
  - Drug effect decreased [None]
  - Drug dose omission [None]
  - Product adhesion issue [None]

NARRATIVE: CASE EVENT DATE: 20170313
